FAERS Safety Report 7086850-4 (Version None)
Quarter: 2010Q4

REPORT INFORMATION
  Report Type: 
  Country: None (occurrence: None)
  Receive Date: 20101105
  Receipt Date: 20101025
  Transmission Date: 20110411
  Serious: Yes (Hospitalization)
  Sender: FDA-Public Use
  Company Number: DE-AMGEN-DEUCT2010001705

PATIENT

DRUGS (3)
  1. ENBREL [Suspect]
     Indication: RHEUMATOID ARTHRITIS
     Dosage: 50 MG, QWK
     Route: 058
     Dates: start: 20090724
  2. FOLIC ACID [Concomitant]
     Dosage: UNKNOWN
  3. METHOTREXATE [Concomitant]
     Dosage: 10MG, FREQUENCY UNKNOWN

REACTIONS (3)
  - HAEMATURIA [None]
  - HYPOGLYCAEMIA [None]
  - RENAL CYST [None]
